FAERS Safety Report 5009100-9 (Version None)
Quarter: 2006Q2

REPORT INFORMATION
  Report Type: 
  Country: None (occurrence: None)
  Receive Date: 20060519
  Receipt Date: 20060509
  Transmission Date: 20061013
  Serious: Yes (Hospitalization)
  Sender: FDA-Public Use
  Company Number: 2006EU001437

PATIENT
  Age: 41 Year
  Sex: Male

DRUGS (3)
  1. FK506 (TACROLIMUS) CAPSULE [Suspect]
     Indication: RENAL AND PANCREAS TRANSPLANT
     Dosage: 9 MG, D, ORAL
     Route: 048
     Dates: start: 20040730
  2. MYCOPHENOLATE MOFETIL [Suspect]
     Indication: RENAL AND PANCREAS TRANSPLANT
     Dosage: 2.5 G, D, ORAL
     Route: 048
     Dates: start: 20040730
  3. PREDNISONE [Concomitant]

REACTIONS (1)
  - ERECTILE DYSFUNCTION [None]
